FAERS Safety Report 17621971 (Version 1)
Quarter: 2020Q2

REPORT INFORMATION
  Report Type: Other
  Country: US (occurrence: US)
  Receive Date: 20200403
  Receipt Date: 20200403
  Transmission Date: 20200713
  Serious: Yes (Hospitalization, Other)
  Sender: FDA-Public Use
  Company Number: US-EMD SERONO-9154521

PATIENT
  Age: 36 Year
  Sex: Female

DRUGS (2)
  1. METFORMIN [Suspect]
     Active Substance: METFORMIN HYDROCHLORIDE
     Indication: TYPE 2 DIABETES MELLITUS
  2. MEDROXYPROGESTERONE [Concomitant]
     Active Substance: MEDROXYPROGESTERONE
     Indication: MENORRHAGIA

REACTIONS (3)
  - Acute kidney injury [Recovering/Resolving]
  - Vitamin B12 deficiency [Recovering/Resolving]
  - Thrombotic thrombocytopenic purpura [Recovering/Resolving]
